FAERS Safety Report 20099700 (Version 1)
Quarter: 2021Q4

REPORT INFORMATION
  Report Type: Spontaneous
  Country: GB (occurrence: GB)
  Receive Date: 20211123
  Receipt Date: 20211123
  Transmission Date: 20220303
  Serious: Yes (Death, Other)
  Sender: FDA-Public Use
  Company Number: GB-JNJFOC-20211136544

PATIENT

DRUGS (1)
  1. IBUPROFEN [Suspect]
     Active Substance: IBUPROFEN
     Indication: Patent ductus arteriosus
     Route: 065

REACTIONS (10)
  - Death [Fatal]
  - Necrotising colitis [Unknown]
  - Intestinal perforation [Unknown]
  - Off label use [Unknown]
  - Product use in unapproved indication [Unknown]
  - Upper gastrointestinal haemorrhage [Unknown]
  - Intraventricular haemorrhage [Unknown]
  - Renal failure [Unknown]
  - Thrombocytopenia [Unknown]
  - Therapeutic response unexpected [Unknown]
